FAERS Safety Report 11566706 (Version 1)
Quarter: 2015Q3

REPORT INFORMATION
  Report Type: Spontaneous
  Country: US (occurrence: US)
  Receive Date: 20150916
  Receipt Date: 20150916
  Transmission Date: 20151125
  Serious: No
  Sender: FDA-Public Use
  Company Number: US-ELI_LILLY_AND_COMPANY-US200906004790

PATIENT
  Sex: Male

DRUGS (6)
  1. FORTEO [Suspect]
     Active Substance: TERIPARATIDE
     Dates: start: 2002, end: 2004
  2. HUMATROPE [Concomitant]
     Active Substance: SOMATROPIN
     Dates: start: 2002
  3. ANALGESICS [Concomitant]
     Active Substance: UNSPECIFIED INGREDIENT
  4. CALCIUM [Concomitant]
     Active Substance: CALCIUM
  5. VITAMIN D [Concomitant]
     Active Substance: CHOLECALCIFEROL
  6. ACTONEL [Concomitant]
     Active Substance: RISEDRONATE SODIUM

REACTIONS (4)
  - Impaired healing [Not Recovered/Not Resolved]
  - Pain [Not Recovered/Not Resolved]
  - Bone density decreased [Not Recovered/Not Resolved]
  - Fractured sacrum [Not Recovered/Not Resolved]

NARRATIVE: CASE EVENT DATE: 2009
